FAERS Safety Report 10306340 (Version 1)
Quarter: 2014Q3

REPORT INFORMATION
  Report Type: Spontaneous
  Country: US (occurrence: US)
  Receive Date: 20140715
  Receipt Date: 20140715
  Transmission Date: 20150326
  Serious: No
  Sender: FDA-Public Use
  Company Number: US-TEVA-494887USA

PATIENT
  Age: 26 Year
  Sex: Female
  Weight: 70.37 kg

DRUGS (3)
  1. PLAN B ONE-STEP [Suspect]
     Active Substance: LEVONORGESTREL
     Indication: POST COITAL CONTRACEPTION
     Dosage: 1.5 MILLIGRAM DAILY;
     Route: 048
     Dates: start: 20140707, end: 20140707
  2. ATENOLOL. [Concomitant]
     Active Substance: ATENOLOL
     Indication: PANIC ATTACK
  3. ATENOLOL. [Concomitant]
     Active Substance: ATENOLOL
     Indication: ANXIETY

REACTIONS (3)
  - Fatigue [Not Recovered/Not Resolved]
  - Mood swings [Not Recovered/Not Resolved]
  - Irritability [Not Recovered/Not Resolved]

NARRATIVE: CASE EVENT DATE: 20140707
